FAERS Safety Report 6315671-2 (Version None)
Quarter: 2009Q3

REPORT INFORMATION
  Report Type: 
  Country: None (occurrence: None)
  Receive Date: 20090818
  Receipt Date: 20090803
  Transmission Date: 20100115
  Serious: Yes (Hospitalization)
  Sender: FDA-Public Use
  Company Number: 2008AL009101

PATIENT
  Age: 79 Year
  Sex: Female

DRUGS (15)
  1. DIGOXIN [Suspect]
     Indication: CARDIAC MURMUR
     Dosage: 0.125MG, DAILY, PO
     Route: 048
  2. COREG [Concomitant]
  3. ASPIRIN [Concomitant]
  4. SYNTHROID [Concomitant]
  5. PLAVIX [Concomitant]
  6. COLACE [Concomitant]
  7. LACTULOSE [Concomitant]
  8. COUMADIN [Concomitant]
  9. LEVOTHYROXINE SODIUM [Concomitant]
  10. DETROL [Concomitant]
  11. TRIGOSAMINE [Concomitant]
  12. BENICAR [Concomitant]
  13. LOTREL [Concomitant]
  14. LASIX [Concomitant]
  15. LOPRESSOR [Concomitant]

REACTIONS (20)
  - ANURIA [None]
  - CARDIAC FAILURE CONGESTIVE [None]
  - CARDIOMEGALY [None]
  - DEHYDRATION [None]
  - DIZZINESS [None]
  - DYSPNOEA [None]
  - EPISTAXIS [None]
  - FEELING COLD [None]
  - HEART RATE IRREGULAR [None]
  - HYPERTENSION [None]
  - HYPOTENSION [None]
  - IMMOBILE [None]
  - OEDEMA PERIPHERAL [None]
  - PALPITATIONS [None]
  - PRESYNCOPE [None]
  - RENAL FAILURE [None]
  - TACHYCARDIA [None]
  - THERAPEUTIC AGENT TOXICITY [None]
  - TREMOR [None]
  - URINE LEUKOCYTE ESTERASE POSITIVE [None]
